FAERS Safety Report 8761918 (Version 1)
Quarter: 2012Q4

REPORT INFORMATION
  Report Type: 
  Country: SE (occurrence: SE)
  Receive Date: 20120830
  Receipt Date: 20120830
  Transmission Date: 20130627
  Serious: Yes (Hospitalization)
  Sender: FDA-Public Use
  Company Number: SE-PFIZER INC-2012210097

PATIENT
  Sex: Female
  Weight: 68.9 kg

DRUGS (5)
  1. GENOTROPIN [Suspect]
     Dosage: 0.1 mg, 7/wk
     Route: 058
     Dates: start: 19950911
  2. LEVAXIN [Concomitant]
     Indication: BLOOD THYROID STIMULATING HORMONE DECREASED
     Dosage: UNK
     Dates: start: 19810901
  3. LEVAXIN [Concomitant]
     Indication: PRIMARY HYPOTHYROIDISM
  4. ALVEDON [Concomitant]
     Indication: BACK PAIN
     Dosage: UNK
     Dates: start: 20030301
  5. METOPROLOL [Concomitant]
     Indication: HYPERTONIA
     Dosage: UNK
     Dates: start: 20061228

REACTIONS (1)
  - Arthropathy [Unknown]
